FAERS Safety Report 17786877 (Version 2)
Quarter: 2020Q2

REPORT INFORMATION
  Report Type: Report from Study
  Country: US (occurrence: US)
  Receive Date: 20200514
  Receipt Date: 20200528
  Transmission Date: 20200714
  Serious: No
  Sender: FDA-Public Use
  Company Number: NVSC2020US131235

PATIENT
  Sex: Male

DRUGS (1)
  1. ENTRESTO [Suspect]
     Active Substance: SACUBITRIL\VALSARTAN
     Indication: CARDIAC FAILURE
     Dosage: 50 MG (24.26 MG), BID
     Route: 048
     Dates: start: 201906

REACTIONS (2)
  - Ejection fraction abnormal [Recovering/Resolving]
  - Brain natriuretic peptide decreased [Recovering/Resolving]
